FAERS Safety Report 9197385 (Version 2)
Quarter: 2013Q3

REPORT INFORMATION
  Report Type: Report from Study
  Country: DE (occurrence: DE)
  Receive Date: 20130328
  Receipt Date: 20130725
  Transmission Date: 20140515
  Serious: Yes (Death)
  Sender: FDA-Public Use
  Company Number: DE-ABBOTT-13P-062-1068769-00

PATIENT
  Sex: Male
  Weight: 90 kg

DRUGS (1)
  1. HUMIRA [Suspect]
     Indication: PSORIASIS
     Route: 058
     Dates: start: 20121220

REACTIONS (1)
  - Meningioma [Fatal]
